FAERS Safety Report 6318007-6 (Version None)
Quarter: 2009Q3

REPORT INFORMATION
  Report Type: 
  Country: None (occurrence: None)
  Receive Date: 20090821
  Receipt Date: 20090810
  Transmission Date: 20100115
  Serious: Yes (Death)
  Sender: FDA-Public Use
  Company Number: JP-PFIZER INC-2009254248

PATIENT

DRUGS (1)
  1. VFEND [Suspect]

REACTIONS (2)
  - DEATH [None]
  - RENAL DISORDER [None]
